FAERS Safety Report 12644087 (Version 1)
Quarter: 2016Q3

REPORT INFORMATION
  Report Type: Spontaneous
  Country: US (occurrence: US)
  Receive Date: 20160811
  Receipt Date: 20160811
  Transmission Date: 20161109
  Serious: No
  Sender: FDA-Public Use
  Company Number: US-GLAXOSMITHKLINE-US2016GSK111200

PATIENT
  Sex: Female

DRUGS (3)
  1. BREO ELLIPTA [Suspect]
     Active Substance: FLUTICASONE FUROATE\VILANTEROL TRIFENATATE
     Dosage: 100/25 MCG SAMPLE
  2. OXYGEN. [Concomitant]
     Active Substance: OXYGEN
     Dosage: 24 HOURS PER DAY
  3. BREO ELLIPTA [Suspect]
     Active Substance: FLUTICASONE FUROATE\VILANTEROL TRIFENATATE
     Indication: EMPHYSEMA
     Dosage: 200/25 MCG; 1 PUFF(S), 1D
     Route: 055

REACTIONS (7)
  - Palpitations [Unknown]
  - Drug effect incomplete [Unknown]
  - Hypopnoea [Unknown]
  - Limb discomfort [Unknown]
  - Malaise [Unknown]
  - Off label use [Unknown]
  - Muscular weakness [Unknown]
